FAERS Safety Report 13153717 (Version 1)
Quarter: 2017Q1

REPORT INFORMATION
  Report Type: Report from Study
  Country: US (occurrence: US)
  Receive Date: 20170126
  Receipt Date: 20170126
  Transmission Date: 20170428
  Serious: Yes (Hospitalization)
  Sender: FDA-Public Use
  Company Number: US-ARIAD-2017US007626

PATIENT
  Age: 54 Year
  Sex: Female
  Weight: 73 kg

DRUGS (1)
  1. PONATINIB [Suspect]
     Active Substance: PONATINIB
     Indication: HEPATOBILIARY CANCER
     Dosage: 45 MG, QD
     Route: 048
     Dates: start: 20161109, end: 20170116

REACTIONS (1)
  - Embolism [Not Recovered/Not Resolved]

NARRATIVE: CASE EVENT DATE: 20170116
